FAERS Safety Report 5057475-7 (Version None)
Quarter: 2006Q3

REPORT INFORMATION
  Report Type: 
  Country: None (occurrence: None)
  Receive Date: 20060721
  Receipt Date: 20051018
  Transmission Date: 20061208
  Serious: No
  Sender: FDA-Public Use
  Company Number: US-GLAXOSMITHKLINE-A0578642A

PATIENT
  Age: 42 Year
  Sex: Male

DRUGS (5)
  1. AVANDIA [Suspect]
     Dosage: 4MG PER DAY
     Route: 048
     Dates: start: 20051015
  2. ATENOLOL [Concomitant]
  3. LISINOPRIL [Concomitant]
  4. TRICOR [Concomitant]
  5. GLIPIZIDE [Concomitant]
     Dates: end: 20051015

REACTIONS (1)
  - BLOOD GLUCOSE INCREASED [None]
